FAERS Safety Report 24403043 (Version 4)
Quarter: 2024Q4

REPORT INFORMATION
  Report Type: Report from Study
  Country: US (occurrence: US)
  Receive Date: 20241007
  Receipt Date: 20241226
  Transmission Date: 20250114
  Serious: No
  Sender: ACADIA PHARMACEUTICALS
  Company Number: US-ACADIA PHARMACEUTICALS INC.-ACA-2024-TRF-005643

PATIENT
  Sex: Female

DRUGS (8)
  1. DAYBUE [Suspect]
     Active Substance: TROFINETIDE
     Indication: Rett syndrome
     Dosage: 40 MILLILITER, BID
     Route: 048
  2. DAYBUE [Suspect]
     Active Substance: TROFINETIDE
     Dosage: 20 MILLILITER, BID
     Route: 048
  3. DAYBUE [Suspect]
     Active Substance: TROFINETIDE
     Dosage: 20 MILLILITER, BID
     Route: 048
  4. DAYBUE [Suspect]
     Active Substance: TROFINETIDE
     Dosage: 40 MILLILITER, BID
     Route: 048
  5. METAMUCIL [Concomitant]
     Active Substance: PLANTAGO SEED
  6. MEDICAL FOOD [Concomitant]
     Active Substance: MEDICAL FOOD
  7. ZONISADE [Concomitant]
     Active Substance: ZONISAMIDE
  8. PEPCID [Concomitant]
     Active Substance: FAMOTIDINE

REACTIONS (5)
  - Gastrointestinal disorder [Unknown]
  - Gastrointestinal disorder [Not Recovered/Not Resolved]
  - Underdose [Not Recovered/Not Resolved]
  - Renal disorder [Not Recovered/Not Resolved]
  - Diarrhoea [Not Recovered/Not Resolved]
